FAERS Safety Report 9436250 (Version 2)
Quarter: 2013Q3

REPORT INFORMATION
  Report Type: Spontaneous
  Country: US (occurrence: US)
  Receive Date: 20130802
  Receipt Date: 20130822
  Transmission Date: 20140515
  Serious: No
  Sender: FDA-Public Use
  Company Number: US-009507513-1307USA015313

PATIENT
  Age: 26 Year
  Sex: Female
  Weight: 65.31 kg

DRUGS (4)
  1. PEGINTRON [Suspect]
     Indication: HEPATITIS C
     Dosage: 96 MICROGRAM, QW
     Dates: start: 201302
  2. VICTRELIS [Suspect]
     Indication: HEPATITIS C
     Dosage: 800 MG, TID
     Route: 048
     Dates: start: 201302
  3. RIBASPHERE [Suspect]
     Indication: HEPATITIS C
     Dosage: 600MG IN THE MORNING AND 400 MG IN EVENING
     Dates: start: 201302
  4. VITAMINS (UNSPECIFIED) [Concomitant]

REACTIONS (2)
  - Anaemia [Not Recovered/Not Resolved]
  - Alopecia [Not Recovered/Not Resolved]
